FAERS Safety Report 6426415-8 (Version None)
Quarter: 2009Q4

REPORT INFORMATION
  Report Type: 
  Country: None (occurrence: None)
  Receive Date: 20091103
  Receipt Date: 20091103
  Transmission Date: 20100525
  Serious: Yes (Other)
  Sender: FDA-Public Use
  Company Number: None

PATIENT
  Age: 8 Year
  Sex: Male
  Weight: 22.6799 kg

DRUGS (1)
  1. DIPHENHYDRAMINE 50MG/ML HOSPIRA [Suspect]
     Indication: PREMEDICATION
     Dosage: 50MG ONCE IV BOLUS ONE TIME
     Route: 040
     Dates: start: 20091022, end: 20091022

REACTIONS (7)
  - BURNING SENSATION [None]
  - DISCOMFORT [None]
  - ERYTHEMA [None]
  - INFUSION RELATED REACTION [None]
  - INFUSION SITE PHLEBITIS [None]
  - PAIN [None]
  - PRURITUS [None]
